FAERS Safety Report 9771777 (Version 1)
Quarter: 2013Q3

REPORT INFORMATION
  Report Type: Spontaneous
  Country: DZ (occurrence: None)
  Receive Date: 20130916
  Receipt Date: 20130916
  Transmission Date: 20140515
  Serious: Yes (Other)
  Sender: FDA-Public Use
  Company Number: 2013DZ0319

PATIENT
  Age: 6 Year
  Sex: Male

DRUGS (3)
  1. NITISINONE (NITISINONE) [Suspect]
     Indication: TYROSINAEMIA
     Route: 048
     Dates: start: 20100722, end: 201307
  2. AMOXICILLINE (AMOXICILLIN) (AMOXICILLIN) [Concomitant]
  3. SALICYLATES (SALICYLATES NOS) (SALICYLATES NOS) [Concomitant]

REACTIONS (8)
  - Jaundice [None]
  - Pyrexia [None]
  - Abdominal pain [None]
  - Vomiting [None]
  - Subileus [None]
  - Succinylacetone increased [None]
  - No therapeutic response [None]
  - Drug interaction [None]
